FAERS Safety Report 4695405-8 (Version None)
Quarter: 2005Q2

REPORT INFORMATION
  Report Type: 
  Country: None (occurrence: None)
  Receive Date: 20050302
  Receipt Date: 20050302
  Transmission Date: 20051028
  Serious: Yes (Other)
  Sender: FDA-Public Use
  Company Number: None

PATIENT
  Sex: Male

DRUGS (2)
  1. DILANTIN [Suspect]
     Indication: CONVULSION
     Dosage: 100MG BID ONE P.O
     Route: 048
     Dates: start: 19870101
  2. CARBATROL [Suspect]
     Indication: CONVULSION
     Dosage: 300MG TWO BID - PO
     Route: 048
     Dates: start: 19990901

REACTIONS (2)
  - CONVULSION [None]
  - IMPAIRED DRIVING ABILITY [None]
